FAERS Safety Report 7587101-4 (Version None)
Quarter: 2011Q3

REPORT INFORMATION
  Report Type: 
  Country: None (occurrence: None)
  Receive Date: 20110701
  Receipt Date: 20110624
  Transmission Date: 20111222
  Serious: Yes (Other)
  Sender: FDA-Public Use
  Company Number: US-GENZYME-CART-1000046

PATIENT

DRUGS (1)
  1. CARTICEL [Suspect]
     Indication: CARTILAGE INJURY
     Dosage: UNK
     Route: 014
     Dates: start: 20080220, end: 20080220

REACTIONS (5)
  - JOINT ADHESION [None]
  - JOINT RANGE OF MOTION DECREASED [None]
  - TREATMENT FAILURE [None]
  - UNEVALUABLE EVENT [None]
  - JOINT STIFFNESS [None]
